FAERS Safety Report 9426560 (Version 1)
Quarter: 2013Q3

REPORT INFORMATION
  Report Type: Spontaneous
  Country: US (occurrence: None)
  Receive Date: 20130729
  Receipt Date: 20130729
  Transmission Date: 20140515
  Serious: Yes (Life-Threatening, Hospitalization)
  Sender: FDA-Public Use
  Company Number: None

PATIENT
  Age: 19 Year
  Sex: Female
  Weight: 49.9 kg

DRUGS (1)
  1. GIANVI [Suspect]
     Indication: CONTRACEPTION
     Route: 048
     Dates: start: 20080601, end: 20130410

REACTIONS (3)
  - Deep vein thrombosis [None]
  - Headache [None]
  - Cerebral thrombosis [None]
